FAERS Safety Report 23925214 (Version 1)
Quarter: 2024Q2

REPORT INFORMATION
  Report Type: Spontaneous
  Country: AU (occurrence: AU)
  Receive Date: 20240531
  Receipt Date: 20240531
  Transmission Date: 20240716
  Serious: Yes (Other)
  Sender: FDA-Public Use
  Company Number: AU-ALLERGAN-2044944US

PATIENT
  Age: 71 Year
  Sex: Female

DRUGS (2)
  1. BIMATOPROST [Suspect]
     Active Substance: BIMATOPROST
     Indication: Open angle glaucoma
     Dosage: 10 MG
     Route: 031
     Dates: start: 20190514, end: 20190514
  2. BIMATOPROST [Suspect]
     Active Substance: BIMATOPROST
     Dosage: 10 MG
     Route: 031
     Dates: start: 20200827, end: 20201110

REACTIONS (1)
  - Corneal endothelial cell loss [Not Recovered/Not Resolved]

NARRATIVE: CASE EVENT DATE: 20201015
